FAERS Safety Report 5636494-3 (Version None)
Quarter: 2008Q1

REPORT INFORMATION
  Report Type: 
  Country: None (occurrence: None)
  Receive Date: 20080225
  Receipt Date: 20080214
  Transmission Date: 20080703
  Serious: Yes (Hospitalization, Other)
  Sender: FDA-Public Use
  Company Number: MX-ELI_LILLY_AND_COMPANY-MX200801005017

PATIENT
  Age: 73 Year
  Sex: Female

DRUGS (1)
  1. FORTEO [Suspect]
     Indication: HIP ARTHROPLASTY
     Dosage: 20 UG, DAILY (1/D)
     Route: 058
     Dates: start: 20051201, end: 20060601

REACTIONS (2)
  - GAIT DISTURBANCE [None]
  - LYMPHOMA [None]
